FAERS Safety Report 5942027-4 (Version None)
Quarter: 2008Q4

REPORT INFORMATION
  Report Type: 
  Country: None (occurrence: None)
  Receive Date: 20081104
  Receipt Date: 20081104
  Transmission Date: 20090506
  Serious: Yes (Hospitalization)
  Sender: FDA-Public Use
  Company Number: None

PATIENT
  Age: 64 Year
  Sex: Male
  Weight: 185.07 kg

DRUGS (2)
  1. INSULIN [Suspect]
     Dosage: 100 IU BID SQ
     Route: 058
     Dates: start: 20031010, end: 20081002
  2. INSULIN [Suspect]
     Dosage: 50-70 IU EVERY DAY SQ
     Route: 058
     Dates: start: 19960117, end: 20081002

REACTIONS (6)
  - ACANTHOSIS NIGRICANS [None]
  - CELLULITIS [None]
  - HYPOGLYCAEMIA [None]
  - INSULIN RESISTANCE [None]
  - INTERTRIGO CANDIDA [None]
  - STASIS DERMATITIS [None]
